FAERS Safety Report 4591285-X (Version None)
Quarter: 2005Q1

REPORT INFORMATION
  Report Type: 
  Country: None (occurrence: None)
  Receive Date: 20050217
  Receipt Date: 20050201
  Transmission Date: 20050727
  Serious: Yes (Hospitalization)
  Sender: FDA-Public Use
  Company Number: 2005-BP-00540BP

PATIENT
  Age: 87 Year
  Sex: Female

DRUGS (7)
  1. FLOMAX [Suspect]
     Indication: URINARY RETENTION
     Dosage: 0.8 MG (0.4 MG), PO; 1.6 MG (0.4 MG), PO
     Route: 048
     Dates: start: 20040101, end: 20041231
  2. FLOMAX [Suspect]
     Indication: URINARY RETENTION
     Dosage: 0.8 MG (0.4 MG), PO; 1.6 MG (0.4 MG), PO
     Route: 048
     Dates: start: 20050101
  3. PREVACID [Concomitant]
  4. ULTRACET (ULTRACET) [Concomitant]
  5. RESTORIL [Concomitant]
  6. IRON (IRON) [Concomitant]
  7. FIBERCON (POLYCARBOPHIL CALCIUM) [Concomitant]

REACTIONS (5)
  - CARDIAC DISORDER [None]
  - FATIGUE [None]
  - HEART RATE INCREASED [None]
  - URINARY TRACT INFECTION [None]
  - VOMITING [None]
